FAERS Safety Report 6679288-2 (Version None)
Quarter: 2010Q2

REPORT INFORMATION
  Report Type: 
  Country: None (occurrence: None)
  Receive Date: 20100409
  Receipt Date: 20100325
  Transmission Date: 20101027
  Serious: Yes (Hospitalization)
  Sender: FDA-Public Use
  Company Number: 003575

PATIENT
  Sex: Female

DRUGS (13)
  1. CERTOLIZUMAB PEGOL (CDP870) [Suspect]
     Indication: RHEUMATOID ARTHRITIS
     Dosage: (SUBCUTANEOUS)
     Route: 058
     Dates: start: 20091013, end: 20091218
  2. METHOTREXATE [Suspect]
     Dosage: (8 MG 1X/WEEK ORAL)
     Route: 048
     Dates: start: 20100105, end: 20100223
  3. REBAMIPIDE [Concomitant]
  4. PREDNISOLONE [Concomitant]
  5. ETODOLAC [Concomitant]
  6. ALENDRONATE SODIUM [Concomitant]
  7. METHOTREXATE [Concomitant]
  8. FOLIC ACID [Concomitant]
  9. RABEPRAZOLE SODIUM [Concomitant]
  10. ISONIAZID [Concomitant]
  11. PYRIDOXAL PHOSPHATE [Concomitant]
  12. NIFEDIPINE [Concomitant]
  13. MAGNESIUM OXIDE [Concomitant]

REACTIONS (15)
  - ABDOMINAL PAIN [None]
  - ACUTE MYOCARDIAL INFARCTION [None]
  - ARTERIOSPASM CORONARY [None]
  - CHLAMYDIA TEST POSITIVE [None]
  - CONDITION AGGRAVATED [None]
  - DIABETES MELLITUS [None]
  - DIARRHOEA [None]
  - DRUG INEFFECTIVE [None]
  - FUNGAL TEST POSITIVE [None]
  - HAEMORRHOIDS [None]
  - INTERSTITIAL LUNG DISEASE [None]
  - MYCOPLASMA TEST POSITIVE [None]
  - ORAL FUNGAL INFECTION [None]
  - PNEUMONIA [None]
  - RHEUMATOID ARTHRITIS [None]
